FAERS Safety Report 18165809 (Version 1)
Quarter: 2020Q3

REPORT INFORMATION
  Report Type: Spontaneous
  Country: US (occurrence: US)
  Receive Date: 20200818
  Receipt Date: 20200818
  Transmission Date: 20201103
  Serious: No
  Sender: FDA-Public Use
  Company Number: US-OTSUKA-2018_025187

PATIENT
  Sex: Male

DRUGS (6)
  1. CLONAZEPAM. [Concomitant]
     Active Substance: CLONAZEPAM
     Indication: ANXIETY
     Dosage: UNK
     Route: 065
  2. LAMICTAL [Concomitant]
     Active Substance: LAMOTRIGINE
     Indication: BIPOLAR DISORDER
     Dosage: UNK
     Route: 065
  3. EQUETRO [Concomitant]
     Active Substance: CARBAMAZEPINE
     Indication: BIPOLAR DISORDER
     Dosage: UNK
     Route: 065
  4. AMBIEN [Concomitant]
     Active Substance: ZOLPIDEM TARTRATE
     Indication: INSOMNIA
     Dosage: UNK
     Route: 065
  5. LORAZEPAM. [Concomitant]
     Active Substance: LORAZEPAM
     Indication: ANXIETY
     Dosage: UNK
     Route: 065
  6. ABILIFY [Suspect]
     Active Substance: ARIPIPRAZOLE
     Indication: BIPOLAR DISORDER
     Dosage: 10 MG, QD
     Route: 065
     Dates: start: 2005, end: 2017

REACTIONS (10)
  - Binge eating [Unknown]
  - Homeless [Unknown]
  - Eating disorder [Recovered/Resolved]
  - Sexual dysfunction [Recovered/Resolved]
  - Compulsive sexual behaviour [Recovered/Resolved]
  - Gambling disorder [Unknown]
  - Hypersexuality [Unknown]
  - Obsessive-compulsive disorder [Recovered/Resolved]
  - Economic problem [Unknown]
  - Compulsive shopping [Recovered/Resolved]

NARRATIVE: CASE EVENT DATE: 2005
